FAERS Safety Report 5654941-8 (Version None)
Quarter: 2008Q1

REPORT INFORMATION
  Report Type: 
  Country: None (occurrence: None)
  Receive Date: 20080307
  Receipt Date: 20071018
  Transmission Date: 20080703
  Serious: No
  Sender: FDA-Public Use
  Company Number: A0682721A

PATIENT
  Age: 40 Year
  Sex: Female

DRUGS (5)
  1. REQUIP [Suspect]
     Indication: RESTLESS LEGS SYNDROME
     Dosage: 1MG AT NIGHT
     Route: 048
     Dates: start: 20070831, end: 20070913
  2. PROTAXON [Concomitant]
  3. MOBID [Concomitant]
  4. EXCEDRIN (MIGRAINE) [Concomitant]
  5. TYLENOL (CAPLET) [Concomitant]

REACTIONS (1)
  - MUSCLE SPASMS [None]
